FAERS Safety Report 8862527 (Version 5)
Quarter: 2013Q1

REPORT INFORMATION
  Report Type: Spontaneous
  Country: US (occurrence: US)
  Receive Date: 20121026
  Receipt Date: 20130319
  Transmission Date: 20140127
  Serious: Yes (Congenital Anomaly, Other)
  Sender: FDA-Public Use
  Company Number: US-PFIZER INC-2012263753

PATIENT
  Sex: Male

DRUGS (8)
  1. ZOLOFT [Suspect]
     Dosage: 50 MG, UNK
     Route: 064
     Dates: start: 2000, end: 2003
  2. YASMIN [Concomitant]
     Dosage: UNK
     Route: 064
  3. ZYRTEC [Concomitant]
     Dosage: UNK
     Route: 064
  4. BRETHINE [Concomitant]
     Dosage: 2.5 MG
     Route: 064
     Dates: start: 20020622
  5. BENZOYL PEROXIDE [Concomitant]
     Dosage: UNK
     Route: 064
  6. TYLENOL [Concomitant]
     Dosage: UNK
     Route: 064
  7. ADVIL [Concomitant]
     Dosage: UNK
     Route: 064
  8. TUMS [Concomitant]
     Dosage: UNK
     Route: 064

REACTIONS (6)
  - Maternal exposure timing unspecified [Unknown]
  - Cleft palate [Unknown]
  - Hypospadias [Unknown]
  - Congenital anomaly [Unknown]
  - Chordee [Unknown]
  - Feeding disorder neonatal [Unknown]
